FAERS Safety Report 5129387-1 (Version None)
Quarter: 2006Q4

REPORT INFORMATION
  Report Type: 
  Country: None (occurrence: None)
  Receive Date: 20061012
  Receipt Date: 20060929
  Transmission Date: 20070319
  Serious: Yes (Other)
  Sender: FDA-Public Use
  Company Number: 2006117523

PATIENT
  Age: 59 Year
  Sex: Male

DRUGS (6)
  1. HALCION [Suspect]
     Indication: AGITATION
     Dosage: ORAL
     Route: 048
  2. HALCION [Suspect]
     Indication: INSOMNIA
     Dosage: ORAL
     Route: 048
  3. ZOLPIDEM TARTRATE [Suspect]
     Indication: AGITATION
     Dosage: ORAL
     Route: 048
  4. ZOLPIDEM TARTRATE [Suspect]
     Indication: INSOMNIA
     Dosage: ORAL
     Route: 048
  5. MAPROTILINE HYDROCHLORIDE [Suspect]
     Indication: AGITATION
     Dosage: ORAL
     Route: 048
  6. MAPROTILINE HYDROCHLORIDE [Suspect]
     Indication: INSOMNIA
     Dosage: ORAL
     Route: 048

REACTIONS (3)
  - AMNESIA [None]
  - PERSECUTORY DELUSION [None]
  - ROAD TRAFFIC ACCIDENT [None]
